FAERS Safety Report 18895569 (Version 2)
Quarter: 2021Q1

REPORT INFORMATION
  Report Type: Spontaneous
  Country: US (occurrence: US)
  Receive Date: 20210216
  Receipt Date: 20210221
  Transmission Date: 20210420
  Serious: No
  Sender: FDA-Public Use
  Company Number: US-JNJFOC-20210221568

PATIENT
  Age: 63 Year
  Sex: Male
  Weight: 95.34 kg

DRUGS (2)
  1. REMICADE [Suspect]
     Active Substance: INFLIXIMAB
     Route: 042
  2. REMICADE [Suspect]
     Active Substance: INFLIXIMAB
     Indication: CROHN^S DISEASE
     Route: 042
     Dates: start: 2020

REACTIONS (2)
  - Drug ineffective [Unknown]
  - Drug specific antibody [Unknown]

NARRATIVE: CASE EVENT DATE: 202101
